FAERS Safety Report 8890224 (Version 1)
Quarter: 2012Q4

REPORT INFORMATION
  Report Type: 
  Country: NL (occurrence: NL)
  Receive Date: 20121107
  Receipt Date: 20121107
  Transmission Date: 20130627
  Serious: Yes (Hospitalization, Other)
  Sender: FDA-Public Use
  Company Number: NL-PFIZER INC-2012274028

PATIENT
  Age: 67 Year
  Sex: Male

DRUGS (5)
  1. ATORVASTATIN CALCIUM [Suspect]
     Indication: MYOCARDIAL INFARCTION
     Dosage: 40 mg, once daily
     Dates: start: 201209, end: 20121014
  2. PRASUGREL HYDROCHLORIDE [Interacting]
     Indication: ACUTE MYOCARDIAL INFARCTION
     Dosage: 10 mg, once daily
     Dates: start: 20120920, end: 20121019
  3. PERINDOPRIL ERBUMINE [Suspect]
     Indication: MYOCARDIAL INFARCTION
     Dosage: 2 mg, once daily
     Dates: start: 201209, end: 20121014
  4. OMEPRAZOLE [Concomitant]
     Dosage: 40 mg, once daily
     Dates: start: 201209, end: 20121014
  5. ASCAL CARDIO [Concomitant]
     Dosage: 100 mg, once daily
     Dates: start: 201209

REACTIONS (6)
  - Drug interaction [Unknown]
  - Pyrexia [Recovering/Resolving]
  - Eosinophilia [Recovering/Resolving]
  - Liver function test abnormal [Recovering/Resolving]
  - Malaise [Recovering/Resolving]
  - Leptospirosis [Unknown]
